FAERS Safety Report 22173739 (Version 1)
Quarter: 2023Q2

REPORT INFORMATION
  Report Type: Report from Study
  Country: US (occurrence: US)
  Receive Date: 20230404
  Receipt Date: 20230404
  Transmission Date: 20230722
  Serious: Yes (Other)
  Sender: FDA-Public Use
  Company Number: US-TAKEDA-US201820995

PATIENT
  Sex: Female

DRUGS (2)
  1. HUMAN IMMUNOGLOBULIN G [Suspect]
     Active Substance: HUMAN IMMUNOGLOBULIN G
     Indication: Immunodeficiency common variable
     Dosage: UNK
     Route: 065
  2. HUMAN IMMUNOGLOBULIN G [Suspect]
     Active Substance: HUMAN IMMUNOGLOBULIN G
     Indication: Primary immunodeficiency syndrome

REACTIONS (9)
  - Pneumonia [Unknown]
  - Infusion site discolouration [Not Recovered/Not Resolved]
  - Infusion site warmth [Unknown]
  - Bronchitis [Unknown]
  - Infusion site reaction [Unknown]
  - Malaise [Unknown]
  - Meniscus injury [Unknown]
  - Arthritis [Unknown]
  - COVID-19 [Unknown]
